FAERS Safety Report 16664812 (Version 5)
Quarter: 2019Q3

REPORT INFORMATION
  Report Type: Report from Study
  Country: None (occurrence: BE)
  Receive Date: 20190803
  Receipt Date: 20190925
  Transmission Date: 20191004
  Serious: Yes (Hospitalization, Other)
  Sender: FDA-Public Use
  Company Number: BE-ABBVIE-19K-013-2873698-00

PATIENT
  Sex: Female

DRUGS (4)
  1. DUODOPA [Suspect]
     Active Substance: CARBIDOPA\LEVODOPA
     Dosage: DOSES CONTINUOUSLY MONITORED AND ADAPTED
     Route: 050
     Dates: start: 20180409, end: 20181121
  2. DUODOPA [Suspect]
     Active Substance: CARBIDOPA\LEVODOPA
     Indication: PARKINSON^S DISEASE
     Dosage: MD=7.5ML, CD=2.6ML/HR DURING 16HRS, ED=1ML
     Route: 050
     Dates: start: 20180115, end: 20180409
  3. DUODOPA [Suspect]
     Active Substance: CARBIDOPA\LEVODOPA
     Dosage: MD=7.5ML, CD=1.8ML/HR DURING 16HRS, ED=1ML
     Route: 050
     Dates: start: 20181121, end: 201907
  4. DUODOPA [Suspect]
     Active Substance: CARBIDOPA\LEVODOPA
     Dosage: MD=7.5ML, CD=1.8ML/HR DURING 16HRS, ED=1ML
     Route: 050
     Dates: start: 20190730, end: 20190806

REACTIONS (7)
  - Anxiety [Not Recovered/Not Resolved]
  - Confusional state [Not Recovered/Not Resolved]
  - Mental disorder [Not Recovered/Not Resolved]
  - Agitation [Not Recovered/Not Resolved]
  - General physical health deterioration [Unknown]
  - Intentional removal of drug delivery system by patient [Unknown]
  - Aggression [Unknown]

NARRATIVE: CASE EVENT DATE: 201907
